FAERS Safety Report 18155592 (Version 1)
Quarter: 2020Q3

REPORT INFORMATION
  Report Type: Spontaneous
  Country: CN (occurrence: CN)
  Receive Date: 20200817
  Receipt Date: 20200817
  Transmission Date: 20201103
  Serious: Yes (Hospitalization)
  Sender: FDA-Public Use
  Company Number: CN-GLAXOSMITHKLINE-CN2020APC159906

PATIENT
  Age: 57 Year
  Sex: Male
  Weight: 65 kg

DRUGS (1)
  1. SERETIDE [Suspect]
     Active Substance: FLUTICASONE PROPIONATE\SALMETEROL XINAFOATE
     Indication: EMPHYSEMA
     Dosage: 1 DF, BID, 50/250 MCG, 60 INHALATIONS
     Route: 055

REACTIONS (8)
  - Dyspnoea [Unknown]
  - Off label use [Unknown]
  - Wrong technique in product usage process [Unknown]
  - Fatigue [Unknown]
  - Overdose [Unknown]
  - Lip discolouration [Unknown]
  - Product use in unapproved indication [Unknown]
  - Nasopharyngitis [Unknown]

NARRATIVE: CASE EVENT DATE: 202006
